FAERS Safety Report 13519532 (Version 1)
Quarter: 2017Q2

REPORT INFORMATION
  Report Type: Spontaneous
  Country: US (occurrence: US)
  Receive Date: 20170505
  Receipt Date: 20170505
  Transmission Date: 20170830
  Serious: Yes (Other)
  Sender: FDA-Public Use
  Company Number: US-BAUSCH-BL-2017-012706

PATIENT
  Age: 76 Year
  Sex: Female

DRUGS (3)
  1. PHENYLEPHRINE 2.5 PERCENT [Suspect]
     Active Substance: PHENYLEPHRINE HYDROCHLORIDE
     Indication: PRODUCT USED FOR UNKNOWN INDICATION
     Dosage: INTRACAMERAL
     Route: 047
  2. BENZALKONIUM CHLORIDE 10 PERCENT [Suspect]
     Active Substance: BENZALKONIUM CHLORIDE
     Indication: PRODUCT USED FOR UNKNOWN INDICATION
     Dosage: INTRACAMERAL
     Route: 047
  3. LIDOCAINE HYDROCHOLORIDE 1 PERCENT [Suspect]
     Active Substance: LIDOCAINE HYDROCHLORIDE
     Indication: PRODUCT USED FOR UNKNOWN INDICATION
     Dosage: INTRACAMERAL
     Route: 047

REACTIONS (2)
  - Toxic anterior segment syndrome [Recovering/Resolving]
  - Product preparation error [Recovering/Resolving]
